FAERS Safety Report 8169517-0 (Version None)
Quarter: 2012Q1

REPORT INFORMATION
  Report Type: 
  Country: None (occurrence: None)
  Receive Date: 20120228
  Receipt Date: 20120216
  Transmission Date: 20120608
  Serious: Yes (Hospitalization)
  Sender: FDA-Public Use
  Company Number: FR-SHIRE-SPV1-2011-01212

PATIENT
  Sex: Female
  Weight: 76 kg

DRUGS (1)
  1. FIRAZYR [Suspect]
     Indication: HEREDITARY ANGIOEDEMA
     Dosage: 30 MG, UNKNOWN
     Route: 058
     Dates: start: 20110902, end: 20110902

REACTIONS (2)
  - DRUG INEFFECTIVE [None]
  - MATERNAL EXPOSURE DURING PREGNANCY [None]
